FAERS Safety Report 9892324 (Version 2)
Quarter: 2014Q1

REPORT INFORMATION
  Report Type: Spontaneous
  Country: IT (occurrence: IT)
  Receive Date: 20140212
  Receipt Date: 20140212
  Transmission Date: 20141002
  Serious: Yes (Other)
  Sender: FDA-Public Use
  Company Number: PHHY2013IT142025

PATIENT
  Age: 38 Year
  Sex: Male

DRUGS (7)
  1. TEGRETOL [Suspect]
     Dosage: 100 MG PER DAY
     Route: 048
  2. SEROQUEL [Suspect]
     Indication: AFFECTIVE DISORDER
     Dosage: 2 DF, ONCE
     Route: 048
  3. LYRICA [Suspect]
     Dosage: 1 DF, ONCE
     Route: 048
  4. TRITTICO [Suspect]
     Dosage: 1 DF, ONCE
     Route: 048
  5. RIVOTRIL [Suspect]
     Dosage: 20 GTT, ONCE
     Route: 048
  6. GABAPENTIN [Suspect]
     Dosage: 100 MG, ONCE
     Route: 048
  7. ANTIPSYCHOTICS [Concomitant]

REACTIONS (4)
  - Drug abuse [Unknown]
  - Intentional self-injury [Unknown]
  - Sopor [Unknown]
  - Loss of consciousness [Unknown]
